FAERS Safety Report 24224327 (Version 1)
Quarter: 2024Q3

REPORT INFORMATION
  Report Type: Spontaneous
  Country: US (occurrence: None)
  Receive Date: 20240818
  Receipt Date: 20240818
  Transmission Date: 20241017
  Serious: Yes (Disabling, Other)
  Sender: Public
  Company Number: None

PATIENT
  Age: 29 Year
  Sex: Female
  Weight: 78.75 kg

DRUGS (1)
  1. HUMIRA [Suspect]
     Active Substance: ADALIMUMAB
     Indication: Skin disorder
     Dates: start: 20210101, end: 20210601

REACTIONS (3)
  - Furuncle [None]
  - Psoriasis [None]
  - Alopecia [None]

NARRATIVE: CASE EVENT DATE: 20210402
